FAERS Safety Report 13312416 (Version 1)
Quarter: 2017Q1

REPORT INFORMATION
  Report Type: Spontaneous
  Country: US (occurrence: US)
  Receive Date: 20170309
  Receipt Date: 20170309
  Transmission Date: 20170428
  Serious: Yes (Death, Other)
  Sender: FDA-Public Use
  Company Number: US-SAOL THERAPEUTICS-2017SAO00364

PATIENT
  Age: 56 Year
  Sex: Male
  Weight: 104.31 kg

DRUGS (13)
  1. LIORESAL [Suspect]
     Active Substance: BACLOFEN
     Indication: MUSCLE SPASTICITY
     Dosage: UNK
     Dates: start: 20090626
  2. HYOSCYAMINE. [Concomitant]
     Active Substance: HYOSCYAMINE
  3. TORVAST [Concomitant]
     Active Substance: ATORVASTATIN
  4. BETROL FORTE [Concomitant]
  5. LIORESAL [Suspect]
     Active Substance: BACLOFEN
     Indication: MUSCLE SPASTICITY
     Dosage: UNK
     Route: 037
  6. ATIVAN [Concomitant]
     Active Substance: LORAZEPAM
  7. LYRICA [Concomitant]
     Active Substance: PREGABALIN
  8. KEPPRA [Concomitant]
     Active Substance: LEVETIRACETAM
  9. DUONEB [Concomitant]
     Active Substance: ALBUTEROL SULFATE\IPRATROPIUM BROMIDE
  10. SYNTHROID [Concomitant]
     Active Substance: LEVOTHYROXINE SODIUM
  11. METFORMIN [Concomitant]
     Active Substance: METFORMIN HYDROCHLORIDE
  12. COLACE [Concomitant]
     Active Substance: DOCUSATE SODIUM
  13. DEPAKENE [Concomitant]
     Active Substance: VALPROIC ACID

REACTIONS (5)
  - Respiratory failure [Fatal]
  - Brain injury [Fatal]
  - Cardiac arrest [Fatal]
  - Pneumonia aspiration [Fatal]
  - Seizure [Fatal]

NARRATIVE: CASE EVENT DATE: 201612
